FAERS Safety Report 10229845 (Version 1)
Quarter: 2014Q2

REPORT INFORMATION
  Report Type: Spontaneous
  Country: US (occurrence: None)
  Receive Date: 20140610
  Receipt Date: 20140610
  Transmission Date: 20141212
  Serious: Yes (Disabling, Other)
  Sender: FDA-Public Use
  Company Number: None

PATIENT
  Age: 41 Year
  Sex: Female
  Weight: 58.97 kg

DRUGS (12)
  1. VENLAFAXINE [Suspect]
     Indication: LYME DISEASE
     Route: 048
     Dates: start: 20140328, end: 201403
  2. VENLAFAXINE [Suspect]
     Indication: FIBROMYALGIA
     Route: 048
     Dates: start: 20140328, end: 201403
  3. IO PROTIN [Concomitant]
  4. DIAZEPAM [Concomitant]
  5. TRAMADOL [Concomitant]
  6. TRAZADONE [Concomitant]
  7. VITAMIN D [Concomitant]
  8. ROPINIROLE [Concomitant]
  9. AMITRIPTYLINE [Concomitant]
  10. ENSURE [Concomitant]
  11. VITAMIN D [Concomitant]
  12. DRINK GREEN TEA [Concomitant]

REACTIONS (5)
  - Myalgia [None]
  - Arthralgia [None]
  - Pain [None]
  - Condition aggravated [None]
  - Weight decreased [None]
